FAERS Safety Report 6942853-9 (Version None)
Quarter: 2010Q3

REPORT INFORMATION
  Report Type: 
  Country: None (occurrence: None)
  Receive Date: 20100826
  Receipt Date: 20100812
  Transmission Date: 20110219
  Serious: Yes (Hospitalization, Other)
  Sender: FDA-Public Use
  Company Number: US-ELI_LILLY_AND_COMPANY-US201008000846

PATIENT
  Age: 61 Year
  Sex: Female

DRUGS (3)
  1. CYMBALTA [Suspect]
     Indication: DEPRESSION
     Dosage: 120 MG, DAILY (1/D)
  2. CYMBALTA [Suspect]
     Dosage: 60 MG, UNK
  3. LEXAPRO [Concomitant]

REACTIONS (36)
  - AFFECT LABILITY [None]
  - ANXIETY [None]
  - ASTHENIA [None]
  - BALANCE DISORDER [None]
  - COGNITIVE DISORDER [None]
  - COLD SWEAT [None]
  - CONTUSION [None]
  - CRYING [None]
  - DAYDREAMING [None]
  - DEAFNESS [None]
  - DECREASED APPETITE [None]
  - DIARRHOEA [None]
  - DIZZINESS [None]
  - DRUG WITHDRAWAL SYNDROME [None]
  - DYSPHORIA [None]
  - EPINEPHRINE DECREASED [None]
  - EYE DISORDER [None]
  - FALL [None]
  - FATIGUE [None]
  - GASTROINTESTINAL PAIN [None]
  - GLAUCOMA [None]
  - HEADACHE [None]
  - HOSPITALISATION [None]
  - HYPERHIDROSIS [None]
  - HYPOAESTHESIA [None]
  - INCONTINENCE [None]
  - INFECTION [None]
  - INSOMNIA [None]
  - IRRITABILITY [None]
  - LOSS OF CONSCIOUSNESS [None]
  - NAUSEA [None]
  - PARAESTHESIA [None]
  - SKIN LESION [None]
  - TREMOR [None]
  - VERTIGO [None]
  - WHEEZING [None]
